FAERS Safety Report 16790306 (Version 1)
Quarter: 2019Q4

REPORT INFORMATION
  Report Type: Spontaneous
  Country: US (occurrence: US)
  Receive Date: 20190909
  Receipt Date: 20190909
  Transmission Date: 20200122
  Serious: Yes (Life-Threatening, Hospitalization, Disabling, Other)
  Sender: FDA-Public Use
  Company Number: None

PATIENT
  Age: 38 Year
  Sex: Male
  Weight: 105.6 kg

DRUGS (1)
  1. EMPAGLIFLOZIN/METFORMIN [Suspect]
     Active Substance: EMPAGLIFLOZIN\METFORMIN HYDROCHLORIDE
     Indication: TYPE 2 DIABETES MELLITUS
     Route: 048
     Dates: start: 20190831, end: 20190904

REACTIONS (2)
  - Euglycaemic diabetic ketoacidosis [None]
  - Chest pain [None]

NARRATIVE: CASE EVENT DATE: 20190904
